FAERS Safety Report 6841310-8 (Version None)
Quarter: 2010Q3

REPORT INFORMATION
  Report Type: 
  Country: None (occurrence: None)
  Receive Date: 20100714
  Receipt Date: 20080228
  Transmission Date: 20110219
  Serious: No
  Sender: FDA-Public Use
  Company Number: US-PFIZER INC-2007052117

PATIENT
  Sex: Female

DRUGS (5)
  1. CHANTIX [Suspect]
     Indication: SMOKING CESSATION THERAPY
     Dates: start: 20070421, end: 20070618
  2. ALL OTHER THERAPEUTIC PRODUCTS [Concomitant]
  3. THYROID TAB [Concomitant]
  4. NEXIUM [Concomitant]
  5. CHOLESTEROL- AND TRIGLYCERIDE REDUCERS [Concomitant]

REACTIONS (6)
  - ABNORMAL DREAMS [None]
  - FLATULENCE [None]
  - HOT FLUSH [None]
  - SLEEP DISORDER [None]
  - URINE ODOUR ABNORMAL [None]
  - WEIGHT INCREASED [None]
